FAERS Safety Report 18526569 (Version 8)
Quarter: 2022Q2

REPORT INFORMATION
  Report Type: Report from Study
  Country: US (occurrence: US)
  Receive Date: 20201120
  Receipt Date: 20220425
  Transmission Date: 20220721
  Serious: Yes (Life-Threatening, Hospitalization, Other)
  Sender: FDA-Public Use
  Company Number: US-BRISTOL-MYERS SQUIBB COMPANY-BMS-2019-081288

PATIENT
  Sex: Female
  Weight: 72.12 kg

DRUGS (54)
  1. NIVOLUMAB [Suspect]
     Active Substance: NIVOLUMAB
     Indication: Pancreatic carcinoma metastatic
     Dosage: 240 MILLIGRAM
     Route: 065
     Dates: start: 20190211
  2. PACLITAXEL [Suspect]
     Active Substance: PACLITAXEL
     Indication: Pancreatic carcinoma metastatic
     Dosage: 125 MILLIGRAM/SQ.METER
     Route: 065
     Dates: start: 20190211
  3. INVESTIGATIONAL PRODUCT [Suspect]
     Active Substance: INVESTIGATIONAL PRODUCT
     Indication: Pancreatic carcinoma metastatic
     Dosage: 0.3 MILLIGRAM/KILOGRAM
     Route: 065
     Dates: start: 20190213
  4. GEMCITABINE [Suspect]
     Active Substance: GEMCITABINE
     Indication: Pancreatic carcinoma metastatic
     Dosage: 1000 MILLIGRAM/SQ.METER
     Route: 065
     Dates: start: 20190211
  5. MAGNESIUM OXIDE [Concomitant]
     Active Substance: MAGNESIUM OXIDE
     Indication: Product used for unknown indication
     Dosage: 400 MILLIGRAM
     Route: 065
     Dates: start: 20190911, end: 20190912
  6. POTASSIUM CHLORIDE [Concomitant]
     Active Substance: POTASSIUM CHLORIDE
     Indication: Product used for unknown indication
     Dosage: 40 MEQ, ER TABLET,
     Route: 065
     Dates: start: 20190910, end: 20190911
  7. POTASSIUM CHLORIDE [Concomitant]
     Active Substance: POTASSIUM CHLORIDE
     Dosage: 30 MEQ, ER TABLET
     Dates: start: 20190909
  8. POTASSIUM CHLORIDE [Concomitant]
     Active Substance: POTASSIUM CHLORIDE
     Indication: Product used for unknown indication
     Dosage: 40 MEQ IN L00ML IVPB PREMIX
     Route: 065
     Dates: start: 20190911
  9. POTASSIUM CHLORIDE [Concomitant]
     Active Substance: POTASSIUM CHLORIDE
     Dosage: 20 MEQ/1 5 ML (10%) ORAL SOLUTION
     Route: 065
     Dates: start: 20190909
  10. POTASSIUM CHLORIDE [Concomitant]
     Active Substance: POTASSIUM CHLORIDE
     Dosage: 40 MEQ IN 100ML IVPB
     Route: 065
     Dates: start: 20190901, end: 20190903
  11. POTASSIUM CHLORIDE [Concomitant]
     Active Substance: POTASSIUM CHLORIDE
     Dosage: 40 MEQ IN NSS 500ML
     Route: 065
     Dates: start: 20190902
  12. CALCIUM CARBONATE [Concomitant]
     Active Substance: CALCIUM CARBONATE
     Indication: Product used for unknown indication
     Dosage: 500 MILLIGRAM, PRN, EVERY 8 HOURS
     Route: 065
     Dates: start: 20190910, end: 20190912
  13. AMLODIPINE [Concomitant]
     Active Substance: AMLODIPINE BESYLATE
     Indication: Product used for unknown indication
     Dosage: 5 MILLIGRAM, QD
     Route: 065
     Dates: start: 20190904, end: 20190908
  14. AMLODIPINE [Concomitant]
     Active Substance: AMLODIPINE BESYLATE
     Dosage: 10 MILLIGRAM, QD
     Route: 065
     Dates: start: 20190908, end: 20190912
  15. PHYTONADIONE [Concomitant]
     Active Substance: PHYTONADIONE
     Indication: Product used for unknown indication
     Dosage: 5 MILLIGRAM, QD
     Route: 065
     Dates: start: 20190906, end: 20190908
  16. HEPARIN LOCK FLUSH [Concomitant]
     Active Substance: HEPARIN SODIUM
     Indication: Product used for unknown indication
     Dosage: 500 UNIT/ML
     Route: 065
     Dates: start: 20190906, end: 20190906
  17. HEPARIN LOCK FLUSH [Concomitant]
     Active Substance: HEPARIN SODIUM
     Dosage: 100 UNIT 100 UNIT/ML
     Route: 065
     Dates: start: 20190912, end: 20190912
  18. ALTEPLASE [Concomitant]
     Active Substance: ALTEPLASE
     Indication: Product used for unknown indication
     Dosage: 1MG/ML SYRINGE 1 MG
     Route: 065
     Dates: start: 20190905, end: 20190906
  19. RIVAROXABAN [Concomitant]
     Active Substance: RIVAROXABAN
     Indication: Product used for unknown indication
     Dosage: 15 MILLIGRAM
     Route: 065
  20. RIVAROXABAN [Concomitant]
     Active Substance: RIVAROXABAN
     Dosage: 20 MILLIGRAM, BID
     Route: 065
     Dates: start: 20190905, end: 20190912
  21. RIVAROXABAN [Concomitant]
     Active Substance: RIVAROXABAN
     Dosage: UNK, QD
     Route: 065
     Dates: start: 20190912, end: 20190927
  22. ZINC OXIDE [Concomitant]
     Active Substance: ZINC OXIDE
     Indication: Product used for unknown indication
     Dosage: 40 PERCENT, BID
     Route: 061
     Dates: start: 20190904, end: 20190912
  23. ZINC OXIDE [Concomitant]
     Active Substance: ZINC OXIDE
     Dosage: 40 PERCENT, QD,PRN
     Route: 061
     Dates: start: 20190904, end: 20190912
  24. HYDRALAZINE [Concomitant]
     Active Substance: HYDRALAZINE HYDROCHLORIDE
     Indication: Product used for unknown indication
     Dosage: 10 MILLIGRAM, Q8H
     Route: 065
     Dates: start: 20190904, end: 20190912
  25. SODIUM CHLORIDE [Concomitant]
     Active Substance: SODIUM CHLORIDE
     Indication: Product used for unknown indication
     Dosage: NASAL SPRAY 2 SPRAY, PRN, Q4H
     Route: 065
     Dates: start: 20190902, end: 20190912
  26. CALAMINE LOTION [Concomitant]
     Active Substance: CALAMINE LOTION
     Indication: Product used for unknown indication
     Dosage: 1 APPLICATION, Q6H
     Dates: start: 20190902, end: 20190912
  27. WHITE PETROLATUM [Concomitant]
     Active Substance: PETROLATUM
     Indication: Product used for unknown indication
     Dosage: 1 APPLICATION , Q6H, PRN
     Route: 065
     Dates: start: 20190901, end: 20190912
  28. VANCOMYCIN [Concomitant]
     Active Substance: VANCOMYCIN
     Indication: Product used for unknown indication
     Dosage: UNK
     Route: 065
     Dates: start: 20190830, end: 20190830
  29. VANCOMYCIN [Concomitant]
     Active Substance: VANCOMYCIN
     Dosage: 125 MG/5ML ORAL SOLUTION 500 MG, Q6H
     Route: 065
     Dates: start: 20190831, end: 20190831
  30. VANCOMYCIN [Concomitant]
     Active Substance: VANCOMYCIN
     Dosage: 125 MG/5ML ORAL SOLUTION 500 MG, Q6H
     Route: 065
     Dates: start: 20190831, end: 20190901
  31. VANCOMYCIN [Concomitant]
     Active Substance: VANCOMYCIN
     Dosage: 125 MG/5ML ORAL SOLUTION 500 MG, Q6H
     Route: 065
     Dates: start: 20190901, end: 20190912
  32. LACTATED RINGERS SOLUTION [Concomitant]
     Active Substance: CALCIUM CHLORIDE\POTASSIUM CHLORIDE\SODIUM CHLORIDE\SODIUM LACTATE
     Indication: Product used for unknown indication
     Dosage: 500 MILLILITER
     Dates: start: 20190829, end: 20190829
  33. LACTATED RINGERS SOLUTION [Concomitant]
     Active Substance: CALCIUM CHLORIDE\POTASSIUM CHLORIDE\SODIUM CHLORIDE\SODIUM LACTATE
     Dosage: 250 MILLILITER
     Dates: start: 20190829, end: 20190829
  34. LACTATED RINGERS SOLUTION [Concomitant]
     Active Substance: CALCIUM CHLORIDE\POTASSIUM CHLORIDE\SODIUM CHLORIDE\SODIUM LACTATE
     Dosage: 250 MILLILITER
     Dates: start: 20190830, end: 20190830
  35. LACTATED RINGERS SOLUTION [Concomitant]
     Active Substance: CALCIUM CHLORIDE\POTASSIUM CHLORIDE\SODIUM CHLORIDE\SODIUM LACTATE
     Dosage: 500 MILLILITER
     Route: 065
     Dates: start: 20190830, end: 20190830
  36. METRONIDAZOLE [Concomitant]
     Active Substance: METRONIDAZOLE
     Indication: Product used for unknown indication
     Dosage: 500MG IN NSS LO0ML IVPB PREMIX , Q8H
     Route: 065
     Dates: start: 20190830, end: 20190830
  37. MG-PLUS-PROTEIN [Concomitant]
     Indication: Product used for unknown indication
     Dosage: 399 MILLIGRAM, BID
     Route: 065
     Dates: start: 20190912, end: 20190912
  38. ACETAMINOPHEN [Concomitant]
     Active Substance: ACETAMINOPHEN
     Indication: Product used for unknown indication
     Dosage: 160 MG/S ML ORAL SOLUTION 650 MG , Q4H
     Route: 048
     Dates: start: 20190829, end: 20190829
  39. ACETAMINOPHEN [Concomitant]
     Active Substance: ACETAMINOPHEN
     Dosage: 160 MG/S ML ORAL SOLUTION 1,000 MG , Q8H
     Route: 048
     Dates: start: 20190829, end: 20190912
  40. PANTOPRAZOLE [Concomitant]
     Active Substance: PANTOPRAZOLE
     Indication: Product used for unknown indication
     Dosage: 40 MILLIGRAM
     Route: 065
     Dates: start: 20190829, end: 20190912
  41. MEROPENEM [Concomitant]
     Active Substance: MEROPENEM
     Indication: Product used for unknown indication
     Dosage: 2 G IN NSS 100 ML IVPB , QD
     Route: 065
     Dates: start: 20190829, end: 20190829
  42. MEROPENEM [Concomitant]
     Active Substance: MEROPENEM
     Dosage: 1 G IN NSS 100 ML IVPB , BID
     Route: 065
     Dates: start: 20190830, end: 20190901
  43. THERAGRAN-M [ASCORBIC ACID;CALCIUM CARBONATE;COPPER;CYANOCOBALAMIN;ERG [Concomitant]
     Indication: Product used for unknown indication
     Dosage: 1 DOSAGE FORM, BID
     Route: 065
     Dates: start: 20190830, end: 20190912
  44. CALCIUM CARBONATE\VITAMIN D [Concomitant]
     Active Substance: CALCIUM CARBONATE\VITAMIN D
     Indication: Product used for unknown indication
     Dosage: 500-200 MG-UNIT, TID
     Route: 065
     Dates: start: 20190830, end: 20190912
  45. VITAMIN B12 [Concomitant]
     Active Substance: CYANOCOBALAMIN
     Indication: Product used for unknown indication
     Dosage: 500 MICROGRAM, QD
     Route: 065
     Dates: start: 20190830, end: 20190912
  46. FERROUS SULFATE [Concomitant]
     Active Substance: FERROUS SULFATE
     Indication: Product used for unknown indication
     Dosage: 325 MILLIGRAM, QD
     Route: 065
     Dates: start: 20190831, end: 20190912
  47. PEPTAMEN AF [Concomitant]
     Indication: Product used for unknown indication
     Dosage: ENTERAL NUTRITION
     Route: 065
     Dates: start: 20190830, end: 20190903
  48. ALPRAZOLAM [Concomitant]
     Active Substance: ALPRAZOLAM
     Indication: Product used for unknown indication
     Dosage: 0.5-1 MG, BEDTIME
     Route: 048
  49. HYDROCHLOROTHIAZIDE [Concomitant]
     Active Substance: HYDROCHLOROTHIAZIDE
     Indication: Product used for unknown indication
     Dosage: 50 MILLIGRAM, QD
     Route: 048
  50. LEVOTHYROXINE [Concomitant]
     Active Substance: LEVOTHYROXINE
     Indication: Product used for unknown indication
     Dosage: 112 MICROGRAM, QD
     Route: 048
  51. DEXPANTHENOL\NIACINAMIDE\PYRIDOXINE HYDROCHLORIDE\RIBOFLAVIN 5^-PHOSPH [Concomitant]
     Active Substance: DEXPANTHENOL\NIACINAMIDE\PYRIDOXINE HYDROCHLORIDE\RIBOFLAVIN 5^-PHOSPHATE SODIUM\THIAMINE HYDROCHLOR
     Indication: Product used for unknown indication
     Dosage: 1 TAB 1 TAB 1 TAB, QD
     Route: 048
  52. RANITIDINE HYDROCHLORIDE [Concomitant]
     Active Substance: RANITIDINE HYDROCHLORIDE
     Indication: Product used for unknown indication
     Dosage: 150 MILLIGRAM, QD
     Route: 048
  53. SERTRALINE [Concomitant]
     Active Substance: SERTRALINE HYDROCHLORIDE
     Indication: Product used for unknown indication
     Dosage: 50 MILLIGRAM, QD
     Route: 048
  54. GABAPENTIN [Concomitant]
     Active Substance: GABAPENTIN
     Indication: Product used for unknown indication
     Dosage: 100 MILLIGRAM, BID
     Route: 048

REACTIONS (7)
  - Clostridium difficile colitis [Unknown]
  - Sepsis [Recovered/Resolved]
  - Acute kidney injury [Unknown]
  - Respiratory failure [Unknown]
  - Escherichia urinary tract infection [Unknown]
  - Mesenteric vein thrombosis [Recovered/Resolved]
  - Delirium [Unknown]

NARRATIVE: CASE EVENT DATE: 20190814
